FAERS Safety Report 4824956-8 (Version None)
Quarter: 2005Q4

REPORT INFORMATION
  Report Type: 
  Country: None (occurrence: None)
  Receive Date: 20051109
  Receipt Date: 20051109
  Transmission Date: 20060501
  Serious: Yes (Life-Threatening, Hospitalization)
  Sender: FDA-Public Use
  Company Number: None

PATIENT
  Sex: Female
  Weight: 60 kg

DRUGS (2)
  1. REMICADE [Suspect]
     Indication: RHEUMATOID ARTHRITIS
     Dosage: 300 MG   Q 8 WEEKS    IV DRIP
     Route: 041
     Dates: start: 20050621, end: 20050909
  2. METHOTREXATE [Suspect]
     Dosage: METHOTREXATE 12.5 MG   Q WEEK   PO
     Route: 048
     Dates: start: 20050302, end: 20050909

REACTIONS (2)
  - ASPERGILLOSIS [None]
  - BRONCHOPULMONARY ASPERGILLOSIS [None]
